FAERS Safety Report 5531125-5 (Version None)
Quarter: 2007Q4

REPORT INFORMATION
  Report Type: 
  Country: None (occurrence: None)
  Receive Date: 20071130
  Receipt Date: 20071119
  Transmission Date: 20080405
  Serious: Yes (Other)
  Sender: FDA-Public Use
  Company Number: US-PFIZER INC-2007098528

PATIENT
  Age: 55 Year
  Sex: Female
  Weight: 54.4 kg

DRUGS (2)
  1. LYRICA [Suspect]
     Indication: NEURALGIA
  2. BACLOFEN [Concomitant]

REACTIONS (2)
  - GAIT DISTURBANCE [None]
  - SENSORY LOSS [None]
